FAERS Safety Report 7995332-4 (Version None)
Quarter: 2011Q4

REPORT INFORMATION
  Report Type: 
  Country: None (occurrence: None)
  Receive Date: 20111220
  Receipt Date: 20111219
  Transmission Date: 20120403
  Serious: Yes (Life-Threatening)
  Sender: FDA-Public Use
  Company Number: IT-BAYER-2011-121830

PATIENT
  Age: 87 Year
  Sex: Female

DRUGS (3)
  1. DIAMICRON [Concomitant]
     Indication: DIABETES MELLITUS
     Dosage: DAILY DOSE 30 MG
     Route: 048
     Dates: start: 20090101, end: 20111216
  2. LOSAZID [Concomitant]
     Indication: ESSENTIAL HYPERTENSION
     Dosage: DAILY DOSE 62.5 MG
     Route: 048
     Dates: start: 20090101, end: 20111216
  3. ASPIRIN [Suspect]
     Indication: CEREBRAL ARTERIOSCLEROSIS
     Dosage: 100 MG, QD
     Route: 048
     Dates: start: 20090101, end: 20111216

REACTIONS (2)
  - HAEMORRHAGIC ANAEMIA [None]
  - MELAENA [None]
